FAERS Safety Report 4642821-6 (Version None)
Quarter: 2005Q2

REPORT INFORMATION
  Report Type: 
  Country: None (occurrence: None)
  Receive Date: 20050421
  Receipt Date: 20050415
  Transmission Date: 20051028
  Serious: No
  Sender: FDA-Public Use
  Company Number: 05H-087-0296475-00

PATIENT
  Age: 6 Year
  Sex: Female
  Weight: 20.25 kg

DRUGS (2)
  1. PRECEDEX [Suspect]
     Dosage: 6 MCG/KG/HR,  INTRAVENOUS
     Route: 042
     Dates: start: 20041116
  2. PROPOFOL [Concomitant]

REACTIONS (3)
  - GLOSSOPTOSIS [None]
  - OBSTRUCTIVE AIRWAYS DISORDER [None]
  - PROCEDURAL COMPLICATION [None]
